FAERS Safety Report 7692162-8 (Version None)
Quarter: 2011Q3

REPORT INFORMATION
  Report Type: 
  Country: None (occurrence: None)
  Receive Date: 20110818
  Receipt Date: 20110808
  Transmission Date: 20111222
  Serious: Yes (Hospitalization, Other)
  Sender: FDA-Public Use
  Company Number: PHHY2011TR51793

PATIENT
  Age: 40 Year
  Sex: Female

DRUGS (9)
  1. MYCOPHENOLATE MOFETIL [Concomitant]
     Indication: IMMUNOSUPPRESSION
     Dosage: UNK
  2. STEROIDS NOS [Concomitant]
     Indication: IMMUNOSUPPRESSION
     Dosage: UNK
  3. PLASMAPHERESIS BLOOD-PACK SYSTEM INFUSION [Concomitant]
     Dosage: 50 ML/KG, UNK
  4. FLUVASTATIN [Concomitant]
     Dosage: UNK
  5. PREDNISOLONE [Concomitant]
     Dosage: UNK
  6. METOPROLOL [Concomitant]
     Dosage: UNK
  7. EVEROLIMUS [Suspect]
     Indication: RENAL TRANSPLANT
  8. ASPIRIN [Concomitant]
  9. FAMOTIDINE [Concomitant]
     Dosage: UNK

REACTIONS (18)
  - MICROANGIOPATHIC HAEMOLYTIC ANAEMIA [None]
  - MEGAKARYOCYTES INCREASED [None]
  - BLOOD LACTATE DEHYDROGENASE INCREASED [None]
  - THROMBOTIC MICROANGIOPATHY [None]
  - IRRITABILITY [None]
  - HAEMOGLOBIN DECREASED [None]
  - PROTEINURIA [None]
  - AGITATION [None]
  - BLOOD UREA INCREASED [None]
  - PYREXIA [None]
  - HAEMOLYSIS [None]
  - THROMBOCYTOPENIA [None]
  - RETICULOCYTE PERCENTAGE INCREASED [None]
  - THROMBOTIC THROMBOCYTOPENIC PURPURA [None]
  - PLATELET COUNT DECREASED [None]
  - BLOOD CREATININE INCREASED [None]
  - HEADACHE [None]
  - RED BLOOD CELL ABNORMALITY [None]
